FAERS Safety Report 8062895-2 (Version None)
Quarter: 2012Q1

REPORT INFORMATION
  Report Type: 
  Country: None (occurrence: None)
  Receive Date: 20120123
  Receipt Date: 20120123
  Transmission Date: 20120608
  Serious: Yes (Life-Threatening, Hospitalization)
  Sender: FDA-Public Use
  Company Number: None

PATIENT
  Sex: Female
  Weight: 70 kg

DRUGS (1)
  1. PRADAXA [Suspect]
     Indication: ATRIAL FIBRILLATION
     Dosage: 150MG
     Route: 048
     Dates: start: 20110601, end: 20120119

REACTIONS (8)
  - BLOOD PRESSURE INCREASED [None]
  - EXCORIATION [None]
  - FALL [None]
  - INJURY [None]
  - BODY TEMPERATURE DECREASED [None]
  - HAEMATOMA [None]
  - SUBDURAL HAEMORRHAGE [None]
  - HAEMORRHAGE [None]
